FAERS Safety Report 9819925 (Version 1)
Quarter: 2014Q1

REPORT INFORMATION
  Report Type: Spontaneous
  Country: US (occurrence: None)
  Receive Date: 20140113
  Receipt Date: 20140113
  Transmission Date: 20141002
  Serious: Yes (Hospitalization, Disabling)
  Sender: FDA-Public Use
  Company Number: None

PATIENT
  Age: 51 Year
  Sex: Female

DRUGS (1)
  1. SUMATRIPTAN [Suspect]
     Indication: MIGRAINE
     Route: 048
     Dates: start: 20140111, end: 20140111

REACTIONS (5)
  - Malaise [None]
  - Hypertension [None]
  - Tremor [None]
  - Product quality issue [None]
  - Incorrect dose administered [None]
